FAERS Safety Report 15846199 (Version 3)
Quarter: 2019Q2

REPORT INFORMATION
  Report Type: Spontaneous
  Country: AT (occurrence: AT)
  Receive Date: 20190120
  Receipt Date: 20190410
  Transmission Date: 20190711
  Serious: Yes (Other)
  Sender: FDA-Public Use
  Company Number: AT-ARRAY-2019-05001

PATIENT

DRUGS (3)
  1. BRAFTOVI [Suspect]
     Active Substance: ENCORAFENIB
     Indication: MALIGNANT MELANOMA STAGE IV
     Dosage: 450 MG, QD
     Route: 048
     Dates: start: 20181212
  2. MEKTOVI [Suspect]
     Active Substance: BINIMETINIB
     Dosage: 45 UNK
     Route: 048
     Dates: start: 20190108
  3. MEKTOVI [Suspect]
     Active Substance: BINIMETINIB
     Indication: MALIGNANT MELANOMA STAGE IV
     Dosage: 45 MG, BID
     Route: 048
     Dates: start: 20181212, end: 20181228

REACTIONS (3)
  - Detachment of macular retinal pigment epithelium [Recovered/Resolved]
  - Chorioretinopathy [Recovering/Resolving]
  - Off label use [Recovered/Resolved]

NARRATIVE: CASE EVENT DATE: 20181212
